FAERS Safety Report 8956753 (Version 1)
Quarter: 2012Q4

REPORT INFORMATION
  Report Type: Spontaneous
  Country: US (occurrence: None)
  Receive Date: 20121111
  Receipt Date: 20121111
  Transmission Date: 20130627
  Serious: Yes (Death, Other)
  Sender: FDA-Public Use
  Company Number: TPA2012A09191

PATIENT
  Age: 52 Year
  Sex: Male
  Weight: 99.79 kg

DRUGS (4)
  1. ACTOS (PIOGLITAZONE HYDROCHLORIDE) [Suspect]
     Indication: TYPE II DIABETES MELLITUS
     Dates: start: 2002, end: 201109
  2. METFORMIN (METFORMIN) [Concomitant]
  3. GLUCOPHAGE (METFORMIN HYDROCHLORIDE) [Concomitant]
  4. LANTUS (INSULIN GLARGINE) [Concomitant]

REACTIONS (5)
  - Bladder cancer [None]
  - Metastases to prostate [None]
  - Metastases to lung [None]
  - Metastases to bone [None]
  - Metastases to central nervous system [None]
